FAERS Safety Report 6906308-X (Version None)
Quarter: 2010Q3

REPORT INFORMATION
  Report Type: 
  Country: None (occurrence: None)
  Receive Date: 20100804
  Receipt Date: 20100728
  Transmission Date: 20110219
  Serious: Yes (Other)
  Sender: FDA-Public Use
  Company Number: A0576381A

PATIENT
  Age: 80 Year
  Sex: Female

DRUGS (11)
  1. FLOVENT [Suspect]
     Indication: ASTHMA
     Dosage: 1PUFF TWICE PER DAY
     Route: 055
     Dates: start: 20100602
  2. FLOVENT [Suspect]
     Dosage: 1PUFF TWICE PER DAY
     Route: 055
     Dates: start: 20100409
  3. FLOVENT [Suspect]
     Route: 055
     Dates: start: 20051001
  4. XOPENEX [Suspect]
     Indication: PRODUCT USED FOR UNKNOWN INDICATION
     Route: 055
  5. COMBIVENT [Concomitant]
     Dosage: 2PUFF VARIABLE DOSE
     Route: 055
  6. THYROID TAB [Concomitant]
     Route: 048
  7. ASCORBIC ACID [Concomitant]
  8. VITAMIN D [Concomitant]
  9. CALCIUM [Concomitant]
  10. THEOPHYLLINE [Concomitant]
  11. PREDNISONE [Concomitant]
     Dates: end: 20100726

REACTIONS (15)
  - ARTHRALGIA [None]
  - CHEST DISCOMFORT [None]
  - DRUG INEFFECTIVE [None]
  - DYSPHONIA [None]
  - DYSPNOEA [None]
  - GAIT DISTURBANCE [None]
  - JOINT STIFFNESS [None]
  - LIP SWELLING [None]
  - MALAISE [None]
  - NO THERAPEUTIC RESPONSE [None]
  - PALPITATIONS [None]
  - PRODUCTIVE COUGH [None]
  - PULMONARY CONGESTION [None]
  - SWOLLEN TONGUE [None]
  - THROAT TIGHTNESS [None]
